FAERS Safety Report 5350015-4 (Version None)
Quarter: 2007Q2

REPORT INFORMATION
  Report Type: 
  Country: None (occurrence: None)
  Receive Date: 20070607
  Receipt Date: 20070526
  Transmission Date: 20071010
  Serious: Yes (Hospitalization, Other)
  Sender: FDA-Public Use
  Company Number: US-PFIZER INC-2007046006

PATIENT
  Sex: Male
  Weight: 102.1 kg

DRUGS (11)
  1. LYRICA [Suspect]
     Indication: NEUROPATHY
     Dates: start: 20050101, end: 20070525
  2. AVANDIA [Suspect]
     Indication: BLOOD GLUCOSE INCREASED
     Dates: start: 20050101, end: 20070516
  3. AMARYL [Suspect]
     Indication: BLOOD GLUCOSE INCREASED
     Dates: start: 20050101, end: 20070515
  4. TOPROL-XL [Concomitant]
  5. GLUCOPHAGE [Concomitant]
  6. LASIX [Concomitant]
  7. LIPITOR [Concomitant]
  8. FENOFIBRATE [Concomitant]
  9. PROTONIX [Concomitant]
  10. PLAVIX [Concomitant]
  11. ACETYLSALICYLIC ACID SRT [Concomitant]

REACTIONS (11)
  - ANOREXIA [None]
  - ANXIETY [None]
  - ASTHENIA [None]
  - ATRIOVENTRICULAR BLOCK [None]
  - DRUG INEFFECTIVE [None]
  - FEELING ABNORMAL [None]
  - HEADACHE [None]
  - MYOCARDIAL INFARCTION [None]
  - STOMACH DISCOMFORT [None]
  - VISUAL ACUITY REDUCED [None]
  - WEIGHT INCREASED [None]
